FAERS Safety Report 5948927-3 (Version None)
Quarter: 2008Q4

REPORT INFORMATION
  Report Type: 
  Country: None (occurrence: None)
  Receive Date: 20081111
  Receipt Date: 20081105
  Transmission Date: 20090506
  Serious: Yes (Other)
  Sender: FDA-Public Use
  Company Number: PT-PFIZER INC-2008094118

PATIENT
  Age: 41 Year
  Sex: Male

DRUGS (4)
  1. CHAMPIX [Suspect]
     Indication: SMOKING CESSATION THERAPY
     Route: 048
  2. ZIPRASIDONE HCL [Concomitant]
     Route: 048
  3. ARTANE [Concomitant]
     Route: 048
  4. LORSEDAL [Concomitant]
     Route: 048

REACTIONS (2)
  - CHROMATOPSIA [None]
  - ROAD TRAFFIC ACCIDENT [None]
